FAERS Safety Report 16263631 (Version 3)
Quarter: 2019Q2

REPORT INFORMATION
  Report Type: Report from Study
  Country: CA (occurrence: CA)
  Receive Date: 20190502
  Receipt Date: 20190517
  Transmission Date: 20190711
  Serious: Yes (Other)
  Sender: FDA-Public Use
  Company Number: PHHY2019CA097641

PATIENT
  Age: 19 Year
  Sex: Female
  Weight: 61.5 kg

DRUGS (4)
  1. DABRAFENIB [Suspect]
     Active Substance: DABRAFENIB
     Dosage: 150 MG, BID
     Route: 048
     Dates: start: 20190421
  2. TRAMETINIB [Suspect]
     Active Substance: TRAMETINIB
     Indication: GLIOBLASTOMA MULTIFORME
     Dosage: 2 MG, QD
     Route: 048
     Dates: start: 20190313
  3. TRAMETINIB [Suspect]
     Active Substance: TRAMETINIB
     Dosage: 2 MG, QD
     Route: 048
     Dates: start: 20190421
  4. DABRAFENIB [Suspect]
     Active Substance: DABRAFENIB
     Indication: GLIOBLASTOMA MULTIFORME
     Dosage: 150 MG, BID
     Route: 048
     Dates: start: 20190313

REACTIONS (3)
  - Pyrexia [Recovered/Resolved]
  - Tooth abscess [Unknown]
  - Chills [Recovered/Resolved]

NARRATIVE: CASE EVENT DATE: 20190422
